FAERS Safety Report 14929665 (Version 1)
Quarter: 2018Q2

REPORT INFORMATION
  Report Type: Spontaneous
  Country: US (occurrence: US)
  Receive Date: 20180504
  Receipt Date: 20180504
  Transmission Date: 20180711
  Serious: Yes (Death)
  Sender: FDA-Public Use
  Company Number: None

PATIENT
  Age: 71 Year
  Sex: Male
  Weight: 77.11 kg

DRUGS (1)
  1. AMIODARONE 200MG [Suspect]
     Active Substance: AMIODARONE
     Indication: EXTRASYSTOLES
     Dates: start: 201702, end: 201706

REACTIONS (3)
  - Dyspnoea [None]
  - Heart rate decreased [None]
  - Impaired quality of life [None]

NARRATIVE: CASE EVENT DATE: 20170617
